FAERS Safety Report 14593173 (Version 1)
Quarter: 2018Q1

REPORT INFORMATION
  Report Type: Spontaneous
  Country: US (occurrence: US)
  Receive Date: 20180302
  Receipt Date: 20180302
  Transmission Date: 20180509
  Serious: No
  Sender: FDA-Public Use
  Company Number: US-NOVOPROD-573138

PATIENT
  Age: 56 Year
  Sex: Female

DRUGS (2)
  1. VICTOZA [Suspect]
     Active Substance: LIRAGLUTIDE
     Indication: GLUCOSE TOLERANCE IMPAIRED
     Dosage: 1.8 MG, QD
     Route: 058
     Dates: start: 201707, end: 201708
  2. VICTOZA [Suspect]
     Active Substance: LIRAGLUTIDE
     Indication: WEIGHT DECREASED

REACTIONS (6)
  - Product use issue [Recovered/Resolved]
  - Abdominal pain upper [Not Recovered/Not Resolved]
  - Back pain [Not Recovered/Not Resolved]
  - Off label use [Recovered/Resolved]
  - Headache [Unknown]
  - Nausea [Unknown]

NARRATIVE: CASE EVENT DATE: 201707
